FAERS Safety Report 8307719-0 (Version None)
Quarter: 2012Q2

REPORT INFORMATION
  Report Type: 
  Country: None (occurrence: None)
  Receive Date: 20120424
  Receipt Date: 20120412
  Transmission Date: 20120825
  Serious: Yes (Hospitalization)
  Sender: FDA-Public Use
  Company Number: PHHY2012IT031463

PATIENT
  Sex: Female

DRUGS (1)
  1. CERTICAN [Suspect]
     Dosage: UNK UKN, UNK

REACTIONS (2)
  - TOXICITY TO VARIOUS AGENTS [None]
  - TRANSPLANT REJECTION [None]
